FAERS Safety Report 19866991 (Version 2)
Quarter: 2021Q3

REPORT INFORMATION
  Report Type: Report from Study
  Country: DE (occurrence: DE)
  Receive Date: 20210922
  Receipt Date: 20210929
  Transmission Date: 20211014
  Serious: Yes (Hospitalization)
  Sender: FDA-Public Use
  Company Number: DE-JNJFOC-20210931667

PATIENT
  Age: 49 Year
  Sex: Female
  Weight: 84 kg

DRUGS (6)
  1. METAMIZOLE [Concomitant]
     Active Substance: METAMIZOLE
     Dates: start: 20190108, end: 20200827
  2. ASACOL [Concomitant]
     Active Substance: MESALAMINE
     Dates: start: 20210526
  3. METAMIZOLE [Concomitant]
     Active Substance: METAMIZOLE
     Dates: start: 20200828
  4. DEKRISTOL [Concomitant]
     Active Substance: CHOLECALCIFEROL
     Indication: VITAMIN D DEFICIENCY
     Dates: start: 20170926
  5. SIMPONI [Suspect]
     Active Substance: GOLIMUMAB
     Indication: COLITIS ULCERATIVE
     Dosage: MOST RECENT DOSE 9?SEP?2021
     Route: 058
     Dates: start: 20190312
  6. SOTAHEXAL [Concomitant]
     Active Substance: SOTALOL
     Indication: TACHYCARDIA PAROXYSMAL

REACTIONS (1)
  - COVID-19 [Unknown]

NARRATIVE: CASE EVENT DATE: 20210909
